FAERS Safety Report 14129386 (Version 2)
Quarter: 2017Q4

REPORT INFORMATION
  Report Type: Other
  Country: US (occurrence: US)
  Receive Date: 20171026
  Receipt Date: 20171110
  Transmission Date: 20180321
  Serious: Yes (Death, Hospitalization)
  Sender: FDA-Public Use
  Company Number: US-INTERCEPT-PMOCA2017001174

PATIENT

DRUGS (1)
  1. OCALIVA [Suspect]
     Active Substance: OBETICHOLIC ACID
     Indication: BILIARY CIRRHOSIS PRIMARY
     Dosage: 5 MG, QD
     Route: 048
     Dates: start: 20170324, end: 201708

REACTIONS (3)
  - Hepatorenal syndrome [Unknown]
  - Diabetic ketoacidosis [Fatal]
  - Brain oedema [Unknown]

NARRATIVE: CASE EVENT DATE: 201710
